FAERS Safety Report 8674272 (Version 5)
Quarter: 2012Q4

REPORT INFORMATION
  Report Type: 
  Country: FR (occurrence: FR)
  Receive Date: 20120719
  Receipt Date: 20121126
  Transmission Date: 20130627
  Serious: Yes (Hospitalization)
  Sender: FDA-Public Use
  Company Number: FR-FRI-1000036978

PATIENT
  Age: 58 Year
  Sex: Male
  Weight: 65 kg

DRUGS (6)
  1. MILNACIPRAN [Suspect]
     Indication: DEPRESSION
     Dosage: 100mg
     Route: 048
     Dates: start: 20120427, end: 201205
  2. MILNACIPRAN [Suspect]
     Dosage: 75 mg
     Route: 048
     Dates: start: 201205, end: 20120704
  3. MILNACIPRAN [Suspect]
     Indication: DEPRESSION
     Dosage: 50 mg
     Route: 048
     Dates: start: 20120705, end: 20120802
  4. LEVEMIR [Suspect]
     Route: 058
     Dates: start: 20120510
  5. APIDRA [Concomitant]
  6. SERESTA [Concomitant]
     Indication: ANXIOLYTIC THERAPY
     Dosage: 50 mg
     Dates: start: 20120330

REACTIONS (5)
  - Weight decreased [Recovered/Resolved]
  - Mood altered [Recovered/Resolved]
  - Palpitations [Recovered/Resolved]
  - Hypertension [Recovered/Resolved]
  - Tachycardia [Recovered/Resolved]
